FAERS Safety Report 5333222-6 (Version None)
Quarter: 2007Q2

REPORT INFORMATION
  Report Type: 
  Country: None (occurrence: None)
  Receive Date: 20070524
  Receipt Date: 20070515
  Transmission Date: 20071010
  Serious: Yes (Other)
  Sender: FDA-Public Use
  Company Number: PHEH2007US07454

PATIENT
  Age: 64 Year
  Sex: Female

DRUGS (1)
  1. MIACALCIN [Suspect]
     Indication: OSTEOPOROSIS POSTMENOPAUSAL
     Dosage: 200 IU, QD
     Dates: start: 20070417, end: 20070514

REACTIONS (8)
  - ABDOMINAL PAIN [None]
  - ARTHRALGIA [None]
  - DEPRESSION [None]
  - ERYTHEMA [None]
  - NAUSEA [None]
  - RASH [None]
  - RHEUMATOID ARTHRITIS [None]
  - SWELLING FACE [None]
